FAERS Safety Report 7184130-X (Version None)
Quarter: 2010Q4

REPORT INFORMATION
  Report Type: 
  Country: None (occurrence: None)
  Receive Date: 20101222
  Receipt Date: 20101217
  Transmission Date: 20110411
  Serious: Yes (Other)
  Sender: FDA-Public Use
  Company Number: CA-US-EMD SERONO, INC.-230192J10CAN

PATIENT
  Sex: Female
  Weight: 48 kg

DRUGS (6)
  1. REBIF [Suspect]
     Indication: DEMYELINATION
     Route: 058
     Dates: start: 20100222, end: 20100101
  2. REBIF [Suspect]
     Route: 058
     Dates: start: 20100101, end: 20100101
  3. REBIF [Suspect]
     Route: 058
     Dates: start: 20100101
  4. ACETAMINOPHEN [Concomitant]
  5. ORTHO-NOVUM 7/7/7-21 [Concomitant]
  6. HYPOKALEMIA SUPPLEMENTED [Concomitant]
     Indication: HYPOKALAEMIA

REACTIONS (8)
  - CHILLS [None]
  - INFLUENZA LIKE ILLNESS [None]
  - INJECTION SITE ERYTHEMA [None]
  - INJECTION SITE HAEMATOMA [None]
  - MYALGIA [None]
  - OFF LABEL USE [None]
  - SMEAR CERVIX ABNORMAL [None]
  - VAGINAL HAEMORRHAGE [None]
